FAERS Safety Report 4810245-4 (Version None)
Quarter: 2005Q4

REPORT INFORMATION
  Report Type: 
  Country: None (occurrence: None)
  Receive Date: 20051026
  Receipt Date: 20051005
  Transmission Date: 20060501
  Serious: Yes (Hospitalization)
  Sender: FDA-Public Use
  Company Number: JP-JPN-A20052370

PATIENT
  Age: 77 Year
  Sex: Female
  Weight: 45 kg

DRUGS (5)
  1. ZOVIRAX [Suspect]
     Indication: HERPES ZOSTER
     Route: 042
     Dates: start: 20050921, end: 20050923
  2. LOXONIN [Suspect]
     Indication: HERPES ZOSTER
     Dosage: 60MG THREE TIMES PER DAY
     Route: 048
     Dates: start: 20050920, end: 20050923
  3. VALTREX [Concomitant]
     Indication: HERPES ZOSTER
     Dosage: 3000MG PER DAY
     Route: 048
     Dates: start: 20050918, end: 20050921
  4. CELTECT [Concomitant]
     Indication: PRURITUS
     Dosage: 60MG PER DAY
     Route: 048
     Dates: start: 20050922, end: 20050926
  5. MUCOSTA [Concomitant]
     Indication: HERPES ZOSTER
     Dosage: 300MG PER DAY
     Route: 048
     Dates: start: 20050920, end: 20050923

REACTIONS (10)
  - ABNORMAL BEHAVIOUR [None]
  - BACK PAIN [None]
  - BLISTER [None]
  - BLOOD CREATININE INCREASED [None]
  - BLOOD UREA INCREASED [None]
  - DISORIENTATION [None]
  - INCOHERENT [None]
  - MEMORY IMPAIRMENT [None]
  - PAIN [None]
  - RENAL IMPAIRMENT [None]
